FAERS Safety Report 5279646-7 (Version None)
Quarter: 2007Q1

REPORT INFORMATION
  Report Type: 
  Country: None (occurrence: None)
  Receive Date: 20070323
  Receipt Date: 20070315
  Transmission Date: 20070707
  Serious: Yes (Hospitalization)
  Sender: FDA-Public Use
  Company Number: 238359

PATIENT
  Age: 48 Year
  Sex: Female
  Weight: 53.6 kg

DRUGS (9)
  1. AVASTIN [Suspect]
     Indication: NON-SMALL CELL LUNG CANCER
     Dosage: 15 MG/KG, Q3W, INTRAVENOUS
     Route: 042
     Dates: start: 20070228, end: 20070228
  2. GEMCITABINE [Suspect]
     Indication: NON-SMALL CELL LUNG CANCER
     Dosage: 1000 MG/M2, X2, INTRAVENOUS
     Route: 042
     Dates: start: 20070228, end: 20070228
  3. PROCHLORPERAZINE MALEATE [Concomitant]
  4. PREDNISONE TAB [Concomitant]
  5. DIOVAN [Concomitant]
  6. HYDROMORPHONE (HYDROMORPHONE HYDROCHLORIDE) [Concomitant]
  7. INSULIN GLARGINE (INSULIN GLARGINE) [Concomitant]
  8. INSULIN LISPRO (LISPRO INSULIN) [Concomitant]
  9. CHLORTHIAZIDE (CHLOROTHIAZIDE) [Concomitant]

REACTIONS (2)
  - ATRIAL FIBRILLATION [None]
  - DEEP VEIN THROMBOSIS [None]
